FAERS Safety Report 9863344 (Version 1)
Quarter: 2014Q1

REPORT INFORMATION
  Report Type: Spontaneous
  Country: MX (occurrence: MX)
  Receive Date: 20140203
  Receipt Date: 20140203
  Transmission Date: 20141002
  Serious: Yes (Other)
  Sender: FDA-Public Use
  Company Number: MX-ACTAVIS-2014-01046

PATIENT
  Sex: 0

DRUGS (1)
  1. CARBAMAZEPINE (UNKNOWN) [Suspect]
     Indication: EPILEPSY
     Dosage: 400 MG, DAILY
     Route: 064

REACTIONS (2)
  - Petit mal epilepsy [Unknown]
  - Foetal exposure during pregnancy [Unknown]
